FAERS Safety Report 25861889 (Version 2)
Quarter: 2025Q4

REPORT INFORMATION
  Report Type: Spontaneous
  Country: AR (occurrence: AR)
  Receive Date: 20250930
  Receipt Date: 20251001
  Transmission Date: 20260118
  Serious: Yes (Other)
  Sender: CELLTRION
  Company Number: AR-CELLTRION INC.-2025AR034764

PATIENT

DRUGS (3)
  1. INFLIXIMAB [Suspect]
     Active Substance: INFLIXIMAB
     Indication: Crohn^s disease
     Dosage: 5 MG/KG IN WEEKS 0,1, AND 4
  2. HYDROCORTISONE [Concomitant]
     Active Substance: HYDROCORTISONE
     Indication: Crohn^s disease
     Dosage: 400 MG/DAY
  3. AZATHIOPRINE [Suspect]
     Active Substance: AZATHIOPRINE
     Indication: Crohn^s disease
     Dosage: 50 MG/DAY COMBINED WITH ORAL ANTIBIOTIC THERAPY TO MANAGE  DYSBACTERIOSIS

REACTIONS (2)
  - Posterior reversible encephalopathy syndrome [Unknown]
  - Intentional product use issue [Unknown]
